FAERS Safety Report 9580262 (Version 1)
Quarter: 2013Q3

REPORT INFORMATION
  Report Type: Spontaneous
  Country: FR (occurrence: None)
  Receive Date: 20130916
  Receipt Date: 20130916
  Transmission Date: 20140515
  Serious: Yes (Other)
  Sender: FDA-Public Use
  Company Number: JPI-P-025124

PATIENT
  Age: 51 Year
  Sex: Male

DRUGS (8)
  1. XYREM [Suspect]
     Indication: CATAPLEXY
     Route: 048
     Dates: start: 20120711, end: 20120711
  2. LEVOTHYROXINE SODIUM [Concomitant]
  3. ACETORPHAN [Concomitant]
  4. PINAVERIUM BROMIDE [Concomitant]
  5. FENOFIBRATE [Concomitant]
  6. RABEPRAZOLE SODIUM [Concomitant]
  7. ALFUZOSINE  (XATRAL) (TABLETS) [Concomitant]
  8. SERONOA REPENS LIPODO STEROLIC EXTRACT (PERMIXON) [Concomitant]

REACTIONS (11)
  - Loss of consciousness [None]
  - Head injury [None]
  - Malaise [None]
  - Malaise [None]
  - Hypotension [None]
  - Hyperhidrosis [None]
  - Vertigo [None]
  - Headache [None]
  - Diarrhoea [None]
  - Fall [None]
  - Hypotension [None]
